FAERS Safety Report 5615947-8 (Version None)
Quarter: 2008Q1

REPORT INFORMATION
  Report Type: 
  Country: None (occurrence: None)
  Receive Date: 20080206
  Receipt Date: 20080130
  Transmission Date: 20080703
  Serious: Yes (Life-Threatening, Hospitalization)
  Sender: FDA-Public Use
  Company Number: US-PFIZER INC-2008000169

PATIENT
  Sex: Male
  Weight: 83 kg

DRUGS (12)
  1. SUTENT [Suspect]
     Indication: METASTATIC RENAL CELL CARCINOMA
     Route: 048
     Dates: start: 20040730, end: 20071231
  2. PENICILLIN G PROCAINE [Suspect]
  3. LOMOTIL [Concomitant]
     Route: 048
  4. INDOMETHACIN [Concomitant]
     Route: 048
     Dates: start: 20071111, end: 20071220
  5. VITAMIN CAP [Concomitant]
     Route: 048
     Dates: start: 20071101
  6. PREDNISONE TAB [Concomitant]
     Route: 048
     Dates: start: 20060921, end: 20071211
  7. VITAMIN D [Concomitant]
     Route: 048
     Dates: start: 20070829
  8. ALKA-SELTZER [Concomitant]
     Route: 048
     Dates: start: 20070219
  9. IBUPROFEN [Concomitant]
     Route: 048
     Dates: start: 20050922
  10. LISINOPRIL [Concomitant]
     Route: 048
     Dates: start: 20050118
  11. OXYCODONE HCL [Concomitant]
     Route: 048
     Dates: start: 20071007
  12. SYNTHROID [Concomitant]
     Route: 048
     Dates: start: 20060424

REACTIONS (2)
  - ACUTE MYOCARDIAL INFARCTION [None]
  - CLOSTRIDIUM DIFFICILE COLITIS [None]
